FAERS Safety Report 6850102-5 (Version None)
Quarter: 2010Q3

REPORT INFORMATION
  Report Type: 
  Country: None (occurrence: None)
  Receive Date: 20100716
  Receipt Date: 20071010
  Transmission Date: 20110219
  Serious: No
  Sender: FDA-Public Use
  Company Number: US-PFIZER INC-2007086137

PATIENT
  Sex: Female
  Weight: 79.4 kg

DRUGS (5)
  1. CHANTIX [Suspect]
     Indication: SMOKING CESSATION THERAPY
     Dates: start: 20070927
  2. WELLBUTRIN [Suspect]
     Indication: DEPRESSION
     Dates: start: 20070927
  3. LEXAPRO [Concomitant]
  4. VYTORIN [Concomitant]
  5. FENOFIBRATE [Concomitant]
     Indication: BLOOD TRIGLYCERIDES INCREASED

REACTIONS (1)
  - NAUSEA [None]
